FAERS Safety Report 25169766 (Version 2)
Quarter: 2025Q2

REPORT INFORMATION
  Report Type: Spontaneous
  Country: US (occurrence: US)
  Receive Date: 20250407
  Receipt Date: 20250506
  Transmission Date: 20250717
  Serious: Yes (Other)
  Sender: COVIS PHARMA GMBH
  Company Number: US-AMAGP-2025COV00370

PATIENT
  Age: 44 Year
  Sex: Female

DRUGS (2)
  1. FERAHEME [Suspect]
     Active Substance: FERUMOXYTOL NON-STOICHIOMETRIC MAGNETITE
     Indication: Iron deficiency anaemia
     Route: 042
     Dates: start: 20250310
  2. FERAHEME [Suspect]
     Active Substance: FERUMOXYTOL NON-STOICHIOMETRIC MAGNETITE
     Route: 042
     Dates: start: 20250317

REACTIONS (7)
  - Liver injury [Not Recovered/Not Resolved]
  - Hepatic iron overload [Not Recovered/Not Resolved]
  - Skin discolouration [Not Recovered/Not Resolved]
  - Mental status changes [Not Recovered/Not Resolved]
  - Tearfulness [Not Recovered/Not Resolved]
  - Menstruation delayed [Not Recovered/Not Resolved]
  - Patient dissatisfaction with treatment [Unknown]
